FAERS Safety Report 4846814-5 (Version None)
Quarter: 2005Q4

REPORT INFORMATION
  Report Type: 
  Country: None (occurrence: None)
  Receive Date: 20051207
  Receipt Date: 20050929
  Transmission Date: 20060501
  Serious: Yes (Other)
  Sender: FDA-Public Use
  Company Number: PHNU2005DE03339

PATIENT
  Age: 45 Year
  Sex: Male
  Weight: 93 kg

DRUGS (3)
  1. VOLTAREN [Suspect]
     Indication: MUSCULOSKELETAL DISCOMFORT
     Dosage: 3 X DURING 24 HOURS
     Route: 061
     Dates: start: 20050927, end: 20050927
  2. VOLTAREN [Suspect]
     Dosage: 1 DF, ONCE/SINGLE
     Dates: start: 20050928, end: 20050928
  3. DICLOFENAC [Suspect]
     Dosage: UNK, UNK
     Route: 048
     Dates: start: 20030101

REACTIONS (3)
  - ABDOMINAL PAIN UPPER [None]
  - CARDIOVASCULAR DISORDER [None]
  - NAUSEA [None]
